FAERS Safety Report 5797024-9 (Version None)
Quarter: 2008Q3

REPORT INFORMATION
  Report Type: 
  Country: None (occurrence: None)
  Receive Date: 20080701
  Receipt Date: 20080623
  Transmission Date: 20090109
  Serious: Yes (Life-Threatening, Hospitalization, Disabling, Other)
  Sender: FDA-Public Use
  Company Number: HQWYE303522MAY07

PATIENT
  Sex: Male
  Weight: 53 kg

DRUGS (14)
  1. MYLOTARG [Suspect]
     Indication: ACUTE MYELOID LEUKAEMIA RECURRENT
     Route: 041
     Dates: start: 20070319, end: 20070319
  2. MYLOTARG [Suspect]
     Dosage: DOSE NOT PROVIDED
     Route: 041
     Dates: start: 20070710, end: 20070710
  3. PREDNISOLONE [Concomitant]
     Route: 048
     Dates: start: 20070309, end: 20070324
  4. RABEPRAZOLE SODIUM [Concomitant]
     Route: 048
     Dates: start: 20070307
  5. BAKTAR [Concomitant]
     Indication: PROPHYLAXIS
     Route: 048
     Dates: start: 20070307
  6. METHOTREXATE [Suspect]
     Indication: ACUTE MYELOID LEUKAEMIA RECURRENT
     Route: 042
     Dates: start: 20070625, end: 20070705
  7. DIFLUCAN [Concomitant]
     Indication: PROPHYLAXIS
     Route: 048
     Dates: start: 20070308, end: 20070419
  8. CIPROFLOXACIN HCL [Concomitant]
     Indication: PROPHYLAXIS
     Route: 048
     Dates: start: 20070308, end: 20070325
  9. GLYSENNID [Concomitant]
     Route: 048
     Dates: start: 20070308
  10. MAG-LAX [Concomitant]
     Route: 048
     Dates: start: 20070312
  11. CYTARABINE [Suspect]
     Indication: ACUTE MYELOID LEUKAEMIA RECURRENT
     Route: 042
     Dates: start: 20070308, end: 20070314
  12. CYTARABINE [Suspect]
     Dosage: UNKNOWN
     Route: 042
     Dates: start: 20070625, end: 20070705
  13. FRAGMIN [Concomitant]
     Dosage: 4 KIU/DAY
     Route: 041
     Dates: start: 20070307, end: 20070323
  14. ZEFFIX [Concomitant]
     Route: 048
     Dates: start: 20070307

REACTIONS (22)
  - ACTIVATED PARTIAL THROMBOPLASTIN TIME PROLONGED [None]
  - ALANINE AMINOTRANSFERASE INCREASED [None]
  - ANAEMIA [None]
  - ASPARTATE AMINOTRANSFERASE INCREASED [None]
  - BLOOD ALBUMIN DECREASED [None]
  - BLOOD ALKALINE PHOSPHATASE INCREASED [None]
  - BLOOD CHOLINESTERASE DECREASED [None]
  - BLOOD LACTATE DEHYDROGENASE INCREASED [None]
  - BLOOD POTASSIUM DECREASED [None]
  - C-REACTIVE PROTEIN INCREASED [None]
  - FEBRILE NEUTROPENIA [None]
  - FIBRIN DEGRADATION PRODUCTS INCREASED [None]
  - HAEMOGLOBIN DECREASED [None]
  - NAUSEA [None]
  - NEUTROPHIL COUNT DECREASED [None]
  - ORAL HERPES [None]
  - PLATELET COUNT DECREASED [None]
  - PNEUMONIA [None]
  - PROTHROMBIN TIME PROLONGED [None]
  - STOMATITIS [None]
  - VISUAL ACUITY REDUCED [None]
  - WHITE BLOOD CELL COUNT DECREASED [None]
